FAERS Safety Report 10048042 (Version 1)
Quarter: 2014Q1

REPORT INFORMATION
  Report Type: Spontaneous
  Country: US (occurrence: None)
  Receive Date: 20140327
  Receipt Date: 20140327
  Transmission Date: 20141002
  Serious: Yes (Other)
  Sender: FDA-Public Use
  Company Number: 2014-US-003071

PATIENT
  Age: 86 Year
  Sex: Female
  Weight: 73.5 kg

DRUGS (5)
  1. XYREM [Suspect]
     Indication: NARCOLEPSY
     Route: 048
     Dates: start: 200403, end: 2004
  2. TORSEMIDE (TORSEMIDE) [Concomitant]
  3. FLUOXETINE (FLUOXETINE HYDROCHLORIDE) [Concomitant]
  4. LEVOTHYROXINE (LEVOTHYROXINE SODIUM) [Concomitant]
  5. LISINOPRIL (LISINOPRIL DIHYDRATE) (UNKNOWN [Concomitant]

REACTIONS (2)
  - Cerebrovascular accident [None]
  - Visual impairment [None]
